FAERS Safety Report 4601490-1 (Version None)
Quarter: 2005Q1

REPORT INFORMATION
  Report Type: 
  Country: None (occurrence: None)
  Receive Date: 20050308
  Receipt Date: 20050216
  Transmission Date: 20050727
  Serious: Yes (Death)
  Sender: FDA-Public Use
  Company Number: JP-ROCHE-395640

PATIENT
  Age: 23 Year
  Sex: Female

DRUGS (11)
  1. CELLCEPT [Suspect]
     Route: 048
     Dates: start: 20021112, end: 20021114
  2. CELLCEPT [Suspect]
     Route: 048
     Dates: start: 20021115, end: 20021204
  3. SOLU-MEDROL [Concomitant]
     Dosage: TDD WAS REPORTED AS 125 - 1000 MG
     Route: 042
     Dates: start: 20021112, end: 20021125
  4. GASTER (JAPAN) [Concomitant]
     Route: 042
     Dates: start: 20021112, end: 20021118
  5. PRIMAXIN [Concomitant]
     Route: 042
     Dates: start: 20021112, end: 20021125
  6. PROGRAF [Concomitant]
     Dosage: TDD OF 2 MG ONCE A DAY WAS STOPPED ON THE 17 NOVEMBER 2002 AND RESTARTED ON 18 NOVEMBER 2002 AT 1 M+
     Route: 048
     Dates: start: 20021114
  7. HABEKACIN [Concomitant]
     Route: 042
     Dates: start: 20021114, end: 20021120
  8. DIFLUCAN [Concomitant]
     Route: 042
     Dates: start: 20021115, end: 20021204
  9. DALACIN S [Concomitant]
     Route: 042
     Dates: start: 20021116, end: 20021204
  10. SIMULECT [Concomitant]
     Route: 042
     Dates: start: 20021118, end: 20021118
  11. OMEPRAL [Concomitant]
     Route: 042
     Dates: start: 20021119, end: 20021204

REACTIONS (4)
  - HAEMODIALYSIS [None]
  - HEPATIC FAILURE [None]
  - POST PROCEDURAL COMPLICATION [None]
  - RENAL FAILURE [None]
